FAERS Safety Report 6742387-0 (Version None)
Quarter: 2010Q2

REPORT INFORMATION
  Report Type: 
  Country: None (occurrence: None)
  Receive Date: 20100524
  Receipt Date: 20100505
  Transmission Date: 20101027
  Serious: Yes (Life-Threatening, Hospitalization)
  Sender: FDA-Public Use
  Company Number: CTI_01195_2010

PATIENT
  Sex: Male

DRUGS (22)
  1. CUROSURF [Suspect]
     Indication: NEONATAL RESPIRATORY DISTRESS SYNDROME
     Dosage: 240 MG QD ENDOTRACHEAL
     Route: 007
     Dates: start: 20100424, end: 20100427
  2. CALCIUM CARBONATE [Concomitant]
  3. FENTANYL [Concomitant]
  4. MIDAZOLAM HCL [Concomitant]
  5. DOPAMINE HCL [Concomitant]
  6. HEPARIN [Concomitant]
  7. KONAKION [Concomitant]
  8. AMPLICILLIN [Concomitant]
  9. CEFOTAXIME [Concomitant]
  10. THEOPHYLLINE [Concomitant]
  11. ETOMIDATE [Concomitant]
  12. ROCURONIUM BROMIDE [Concomitant]
  13. ATROPINE [Concomitant]
  14. MORPHINE SULFATE [Concomitant]
  15. VASOPRESSIN [Concomitant]
  16. PHENOBARBITAL [Concomitant]
  17. PANCURONIUM BROMIDE [Concomitant]
  18. EPINEPHRINE [Concomitant]
  19. DOBUTAMIN [Concomitant]
  20. NOREPINEPHRINE [Concomitant]
  21. GENTAMICIN [Concomitant]
  22. HYDROCORTISONE [Concomitant]

REACTIONS (3)
  - PNEUMOPERICARDIUM [None]
  - PNEUMOTHORAX [None]
  - PULMONARY HAEMORRHAGE [None]
